FAERS Safety Report 20939153 (Version 1)
Quarter: 2022Q2

REPORT INFORMATION
  Report Type: Spontaneous
  Country: US (occurrence: US)
  Receive Date: 20220609
  Receipt Date: 20220609
  Transmission Date: 20220721
  Serious: No
  Sender: FDA-Public Use
  Company Number: US-FreseniusKabi-FK202207914

PATIENT

DRUGS (1)
  1. XYLOCAINE-MPF [Suspect]
     Active Substance: LIDOCAINE HYDROCHLORIDE
     Dosage: XLYLOCAINE- MPF 0.5 PERCENT 50ML

REACTIONS (1)
  - Therapeutic product effect decreased [Unknown]
